FAERS Safety Report 8872911 (Version 1)
Quarter: 2012Q4

REPORT INFORMATION
  Report Type: 
  Country: US (occurrence: US)
  Receive Date: 20121026
  Receipt Date: 20121026
  Transmission Date: 20130627
  Serious: No
  Sender: FDA-Public Use
  Company Number: US-AMGEN-USASP2012050181

PATIENT
  Age: 59 Year
  Sex: Male

DRUGS (13)
  1. ENBREL [Suspect]
     Indication: PRODUCT USED FOR UNKNOWN INDICATION
     Dosage: 50 mg, qwk
     Route: 058
  2. ZENTACIN [Concomitant]
     Dosage: 10 mg, UNK
  3. LANTUS [Concomitant]
     Dosage: UNK (100/ ML)
  4. ASPIRIN [Concomitant]
     Dosage: 81 mg, UNK
  5. TOPROL [Concomitant]
     Dosage: 100 mg, UNK
  6. METFORMIN [Concomitant]
     Dosage: 1000 mg, UNK
  7. LIPITOR [Concomitant]
     Dosage: 10 mg, UNK
  8. FOSINOPRIL [Concomitant]
     Dosage: 10 mg, UNK
  9. OMEPRAZOLE [Concomitant]
     Dosage: 40 mg, UNK
  10. AMLODIPINE [Concomitant]
     Dosage: 10 mg, UNK
  11. HUMALOG [Concomitant]
     Dosage: UNK (100 /ML)
  12. VITAMIN B12                        /00056201/ [Concomitant]
     Dosage: UNK (1000 CR)
  13. IRON COMPLEX                       /00023501/ [Concomitant]
     Dosage: UNK

REACTIONS (2)
  - Rash generalised [Recovered/Resolved]
  - Pruritus [Recovered/Resolved]
